APPROVED DRUG PRODUCT: FETROJA
Active Ingredient: CEFIDEROCOL SULFATE TOSYLATE
Strength: EQ 1GM BASE/VIAL
Dosage Form/Route: POWDER;INTRAVENOUS
Application: N209445 | Product #001
Applicant: SHIONOGI INC
Approved: Nov 14, 2019 | RLD: Yes | RS: Yes | Type: RX

PATENTS:
Patent 9238657 | Expires: Nov 14, 2033
Patent 9238657 | Expires: Nov 14, 2033
Patent 9238657 | Expires: Nov 14, 2033
Patent 10004750 | Expires: Sep 3, 2035
Patent 9949982 | Expires: Sep 3, 2035

EXCLUSIVITY:
Code: NCE | Date: Nov 14, 2024
Code: GAIN | Date: Nov 14, 2029